FAERS Safety Report 8041073-7 (Version None)
Quarter: 2012Q1

REPORT INFORMATION
  Report Type: 
  Country: None (occurrence: None)
  Receive Date: 20120109
  Receipt Date: 20120104
  Transmission Date: 20120608
  Serious: Yes (Life-Threatening, Hospitalization, Other)
  Sender: FDA-Public Use
  Company Number: AUR-APL-2011-06261

PATIENT
  Age: 54 Year
  Sex: Male

DRUGS (8)
  1. METFORMIN HCL [Suspect]
     Indication: DIABETES MELLITUS MANAGEMENT
     Dosage: ORAL
     Route: 048
     Dates: start: 20110101
  2. ALL OTHER THERAPEUTIC PRODUCTS (ALL OTHER THERAPEUTIC PRODUCTS) [Concomitant]
  3. FUROSEMIDE [Concomitant]
  4. RAMIPRIL [Suspect]
     Indication: HYPERTENSION
     Dosage: ORAL
     Dates: start: 20110101
  5. BISOPROLOL FUMARATE [Concomitant]
  6. GTN (GLYCERYL TRINITRATE) [Concomitant]
  7. ASPIRIN [Concomitant]
  8. ATORVASTATIN [Concomitant]

REACTIONS (9)
  - FALL [None]
  - RENAL FAILURE ACUTE [None]
  - APPARENT LIFE THREATENING EVENT [None]
  - HYPOTHERMIA [None]
  - HYPOGLYCAEMIA [None]
  - RENAL INJURY [None]
  - TOXICITY TO VARIOUS AGENTS [None]
  - LACTIC ACIDOSIS [None]
  - SEPSIS [None]
